FAERS Safety Report 11862319 (Version 2)
Quarter: 2015Q4

REPORT INFORMATION
  Report Type: Report from Study
  Country: DE (occurrence: DE)
  Receive Date: 20151222
  Receipt Date: 20151223
  Transmission Date: 20160305
  Serious: Yes (Death)
  Sender: FDA-Public Use
  Company Number: PHHY2015DE157880

PATIENT
  Sex: Male
  Weight: 105 kg

DRUGS (10)
  1. SIMVASTATIN AL [Concomitant]
     Indication: PRODUCT USED FOR UNKNOWN INDICATION
     Dosage: 1 DF, QD
     Route: 065
     Dates: start: 20121119
  2. TEMAZEPAM. [Concomitant]
     Active Substance: TEMAZEPAM
     Indication: PRODUCT USED FOR UNKNOWN INDICATION
     Dosage: 1 DF, QD (1/2 TO ONE PER DAY)
     Route: 065
     Dates: start: 20120404
  3. OMEPRAZOL AL [Concomitant]
     Indication: PRODUCT USED FOR UNKNOWN INDICATION
     Dosage: 40 OT, QD
     Route: 065
     Dates: start: 20140130
  4. METOPROLOL SUCCINAT BETA [Concomitant]
     Indication: PRODUCT USED FOR UNKNOWN INDICATION
     Dosage: 1 DF, QD
     Route: 065
     Dates: start: 20120404, end: 20150824
  5. PHENPROCOUMON [Concomitant]
     Active Substance: PHENPROCOUMON
     Indication: PRODUCT USED FOR UNKNOWN INDICATION
     Dosage: 3 OT (ACCORDING TO QUICK/INR)
     Route: 065
     Dates: start: 20120702
  6. RAMIPRIL AL [Concomitant]
     Indication: PRODUCT USED FOR UNKNOWN INDICATION
     Dosage: 1 DF, QD
     Route: 065
     Dates: start: 20120404
  7. QVA149 [Suspect]
     Active Substance: INVESTIGATIONAL PRODUCT
     Indication: CHRONIC OBSTRUCTIVE PULMONARY DISEASE
     Dosage: 1 DF, QD (50 UG GLYCOPYRRIMIUM AND 110 UG INDACTEROL)
     Route: 055
     Dates: start: 20141127
  8. TORASEMID AL [Concomitant]
     Indication: PRODUCT USED FOR UNKNOWN INDICATION
     Dosage: 1 DF, QD
     Route: 065
     Dates: start: 20120404
  9. ALDACTONE [Concomitant]
     Active Substance: SPIRONOLACTONE
     Indication: PRODUCT USED FOR UNKNOWN INDICATION
     Dosage: 1 DF, QD
     Route: 065
     Dates: start: 20120404
  10. METFORMIN ^STADA^ [Concomitant]
     Indication: PRODUCT USED FOR UNKNOWN INDICATION
     Dosage: 1000 MG, QD
     Route: 065
     Dates: start: 20120404

REACTIONS (2)
  - Peripheral arterial occlusive disease [Fatal]
  - Death [Fatal]
